FAERS Safety Report 5109277-0 (Version None)
Quarter: 2006Q3

REPORT INFORMATION
  Report Type: 
  Country: None (occurrence: None)
  Receive Date: 20060918
  Receipt Date: 20060829
  Transmission Date: 20061208
  Serious: No
  Sender: FDA-Public Use
  Company Number: US200604004279

PATIENT
  Age: 81 Year
  Sex: Male

DRUGS (5)
  1. ZYPREXA [Suspect]
     Indication: HALLUCINATION
     Dosage: 10 MG, OTHER, ORAL
     Route: 048
     Dates: start: 20060425, end: 20060425
  2. FOSINOPRIL SODIUM [Concomitant]
  3. FOLIC ACID [Concomitant]
  4. ASPIRIN [Concomitant]
  5. TUMS (CALCIUM CARBONATE) [Concomitant]

REACTIONS (4)
  - DYSARTHRIA [None]
  - FEELING DRUNK [None]
  - SEDATION [None]
  - SOMNOLENCE [None]
